FAERS Safety Report 14595857 (Version 1)
Quarter: 2018Q1

REPORT INFORMATION
  Report Type: Other
  Country: GB (occurrence: GB)
  Receive Date: 20180303
  Receipt Date: 20180303
  Transmission Date: 20180509
  Serious: Yes (Other)
  Sender: FDA-Public Use
  Company Number: GB-GLENMARK PHARMACEUTICALS-2018GMK032754

PATIENT

DRUGS (2)
  1. NAPROXEN SODIUM. [Suspect]
     Active Substance: NAPROXEN SODIUM
     Indication: TRIGEMINAL NEURALGIA
     Dosage: UNK
     Route: 065
  2. DULOXETINE. [Interacting]
     Active Substance: DULOXETINE
     Indication: TRIGEMINAL NEURALGIA
     Dosage: UNK
     Route: 065

REACTIONS (4)
  - Blood urea increased [Unknown]
  - Abdominal pain [Unknown]
  - Contraindicated product administered [Unknown]
  - Anaemia [Unknown]

NARRATIVE: CASE EVENT DATE: 20171227
